FAERS Safety Report 9935115 (Version 1)
Quarter: 2014Q1

REPORT INFORMATION
  Report Type: Spontaneous
  Country: CL (occurrence: CL)
  Receive Date: 20140228
  Receipt Date: 20140228
  Transmission Date: 20141002
  Serious: Yes (Death, Other)
  Sender: FDA-Public Use
  Company Number: CL-PFIZER INC-2014056569

PATIENT
  Sex: Female

DRUGS (1)
  1. XALATAN [Suspect]
     Indication: GLAUCOMA
     Dosage: 1 DROP, 1X/DAY
     Route: 047
     Dates: start: 2011, end: 20131127

REACTIONS (2)
  - Lung disorder [Fatal]
  - Diabetes mellitus [Unknown]
